FAERS Safety Report 21631252 (Version 1)
Quarter: 2022Q4

REPORT INFORMATION
  Report Type: Spontaneous
  Country: CA (occurrence: CA)
  Receive Date: 20221123
  Receipt Date: 20221123
  Transmission Date: 20230113
  Serious: Yes (Other)
  Sender: FDA-Public Use
  Company Number: None

PATIENT
  Age: 33 Year
  Sex: Male

DRUGS (1)
  1. DAPTOMYCIN [Suspect]
     Active Substance: DAPTOMYCIN
     Indication: Product used for unknown indication

REACTIONS (4)
  - Blood creatine phosphokinase increased [Unknown]
  - Muscle discomfort [Unknown]
  - Muscle fatigue [Unknown]
  - Myalgia [Unknown]
